FAERS Safety Report 8221581-6 (Version None)
Quarter: 2012Q1

REPORT INFORMATION
  Report Type: 
  Country: None (occurrence: None)
  Receive Date: 20120320
  Receipt Date: 20120312
  Transmission Date: 20120608
  Serious: Yes (Hospitalization)
  Sender: FDA-Public Use
  Company Number: US-ACTELION-A-US2011-57474

PATIENT

DRUGS (1)
  1. TRACLEER [Suspect]
     Indication: PULMONARY ARTERIAL HYPERTENSION
     Dosage: UNK
     Route: 048
     Dates: start: 20110520

REACTIONS (5)
  - VOMITING [None]
  - FATIGUE [None]
  - PYREXIA [None]
  - SICKLE CELL ANAEMIA WITH CRISIS [None]
  - NAUSEA [None]
